FAERS Safety Report 4958851-0 (Version None)
Quarter: 2006Q1

REPORT INFORMATION
  Report Type: 
  Country: None (occurrence: None)
  Receive Date: 20060324
  Receipt Date: 20060220
  Transmission Date: 20060701
  Serious: No
  Sender: FDA-Public Use
  Company Number: 437554

PATIENT
  Age: 55 Year
  Sex: Female

DRUGS (2)
  1. XELODA [Suspect]
  2. ZOLEDRONIC ACID (ZOLEDRONIC ACID) [Concomitant]

REACTIONS (13)
  - CONJUNCTIVAL OEDEMA [None]
  - DIPLOPIA [None]
  - DISORDER OF ORBIT [None]
  - EXOPHTHALMOS [None]
  - EYE DISORDER [None]
  - EYE PAIN [None]
  - EYELID OEDEMA [None]
  - LACRIMATION INCREASED [None]
  - MASS [None]
  - MUSCLE DISORDER [None]
  - PAROPHTHALMIA [None]
  - SKIN LESION [None]
  - VISUAL ACUITY REDUCED [None]
